FAERS Safety Report 5435178-4 (Version None)
Quarter: 2007Q3

REPORT INFORMATION
  Report Type: 
  Country: None (occurrence: None)
  Receive Date: 20070831
  Receipt Date: 20070822
  Transmission Date: 20080115
  Serious: No
  Sender: FDA-Public Use
  Company Number: A0670433A

PATIENT

DRUGS (2)
  1. ALLI [Suspect]
  2. MULTI-VITAMIN [Suspect]
     Route: 048

REACTIONS (4)
  - DYSPEPSIA [None]
  - FLATULENCE [None]
  - MIDDLE INSOMNIA [None]
  - NAUSEA [None]
